FAERS Safety Report 12554697 (Version 1)
Quarter: 2016Q3

REPORT INFORMATION
  Report Type: Spontaneous
  Country: ES (occurrence: ES)
  Receive Date: 20160713
  Receipt Date: 20160713
  Transmission Date: 20161109
  Serious: Yes (Hospitalization)
  Sender: FDA-Public Use
  Company Number: ES-B.I. PHARMACEUTICALS,INC./RIDGEFIELD-2016-BI-44325ES

PATIENT
  Age: 90 Year
  Sex: Female

DRUGS (7)
  1. MIRAPEXIN [Suspect]
     Active Substance: PRAMIPEXOLE
     Indication: PARKINSON^S DISEASE
     Dosage: 0.69 MG
     Route: 048
     Dates: start: 20091219, end: 20150309
  2. LOVASTATIN. [Concomitant]
     Active Substance: LOVASTATIN
     Indication: DYSLIPIDAEMIA
     Dosage: 20 MG
     Route: 048
     Dates: start: 2003
  3. MIRTAZAPINE. [Suspect]
     Active Substance: MIRTAZAPINE
     Indication: DEPRESSION
     Dosage: 15 MG
     Route: 048
     Dates: start: 20111004, end: 20150309
  4. LORAZEPAM. [Concomitant]
     Active Substance: LORAZEPAM
     Indication: INSOMNIA
     Dosage: 1 MG
     Route: 048
     Dates: start: 2010
  5. EUTIROX [Concomitant]
     Active Substance: LEVOTHYROXINE SODIUM
     Indication: HYPOTHYROIDISM
     Dosage: 125 MG
     Route: 048
     Dates: start: 2004
  6. ENALAPRIL + HYDROCHLOROTHIAZIDE [Suspect]
     Active Substance: ENALAPRIL MALEATE\HYDROCHLOROTHIAZIDE
     Indication: HYPERTENSION
     Dosage: 20 MG
     Route: 048
     Dates: start: 20100713, end: 20150309
  7. AMLODIPINE [Concomitant]
     Active Substance: AMLODIPINE BESYLATE
     Indication: HYPERTENSION
     Dosage: 5 MG
     Route: 048
     Dates: start: 20100702, end: 20150309

REACTIONS (4)
  - Drug interaction [Unknown]
  - Inappropriate antidiuretic hormone secretion [Recovered/Resolved]
  - Confusional state [Recovered/Resolved]
  - Aspiration bronchial [Not Recovered/Not Resolved]

NARRATIVE: CASE EVENT DATE: 20150311
